FAERS Safety Report 9597315 (Version 1)
Quarter: 2013Q4

REPORT INFORMATION
  Report Type: Spontaneous
  Country: US (occurrence: US)
  Receive Date: 20131004
  Receipt Date: 20131004
  Transmission Date: 20140711
  Serious: No
  Sender: FDA-Public Use
  Company Number: US-AMGEN-USASP2013018576

PATIENT
  Age: 15 Year
  Sex: Male
  Weight: 86.17 kg

DRUGS (12)
  1. ENBREL [Suspect]
     Indication: PSORIATIC ARTHROPATHY
     Dosage: 50 MG/ML, ONCE PER WEEK
     Route: 058
     Dates: end: 20130309
  2. TORADOL [Concomitant]
     Dosage: 10 MG, UNK
     Route: 048
  3. AMITRIPTYLIN [Concomitant]
     Dosage: 25 MG, UNK
  4. CYMBALTA [Concomitant]
     Dosage: 20 MG, UNK
  5. VYVANSE [Concomitant]
     Dosage: 20 MG, UNK
  6. MELATONIN [Concomitant]
     Dosage: 1 MG, UNK
  7. BENADRYL                           /00000402/ [Concomitant]
     Dosage: 25 MG, UNK
  8. TYLENOL                            /00020001/ [Concomitant]
     Dosage: 325 MG, UNK
  9. METHOTREXATE [Concomitant]
     Dosage: 2.5 MG, UNK
  10. FOLIC ACID [Concomitant]
     Dosage: UNK
  11. MULTIVITAMINS, PLAIN [Concomitant]
     Dosage: UNK
  12. UREA [Concomitant]
     Dosage: 10 %, UNK

REACTIONS (4)
  - Drug ineffective [Unknown]
  - Condition aggravated [Unknown]
  - Nausea [Unknown]
  - Headache [Unknown]
